FAERS Safety Report 9467337 (Version 2)
Quarter: 2014Q1

REPORT INFORMATION
  Report Type: Report from Study
  Country: JP (occurrence: JP)
  Receive Date: 20130821
  Receipt Date: 20140115
  Transmission Date: 20141002
  Serious: Yes (Other)
  Sender: FDA-Public Use
  Company Number: JP-009507513-1308JPN008439

PATIENT
  Age: 40 Year
  Sex: Female

DRUGS (11)
  1. ISENTRESS TABLETS 400MG [Suspect]
     Indication: HIV INFECTION
     Dosage: 800 MG DAILY, DIVIDED DOSE FREQUENCY UNKNOWN
     Route: 048
     Dates: start: 20090422
  2. TRUVADA [Concomitant]
     Indication: HIV INFECTION
     Dosage: 1 DF DAILY, DIVIDED DOSE FREQUENCY UNKNOWN
     Route: 048
     Dates: start: 20080926, end: 20081021
  3. TRUVADA [Concomitant]
     Dosage: 1 DF DAILY, DIVIDED DOSE FREQUENCY UNKNOWN
     Route: 048
     Dates: start: 20081101
  4. EPZICOM [Concomitant]
     Indication: HIV INFECTION
     Dosage: 1 DF DAILY, DIVIDED DOSE FREQUENCY UNKNOWN
     Route: 048
     Dates: start: 20081022, end: 20081025
  5. KALETRA [Concomitant]
     Indication: HIV INFECTION
     Dosage: 10 ML DAILY, DIVIDED DOSE FREQUENCY UNKNOWN
     Route: 048
     Dates: start: 20081101, end: 20081130
  6. KALETRA [Concomitant]
     Indication: HIV INFECTION
     Dosage: 4 DF DAILY, DIVIDED DOSE FREQUENCY UNKNOWN
     Route: 048
     Dates: start: 20081201, end: 20090312
  7. STOCRIN TABLETS 600MG [Concomitant]
     Indication: HIV INFECTION
     Dosage: 600 MG DAILY, DIVIDED DOSE FREQUENCY UNKNOWN
     Route: 048
     Dates: start: 20080926, end: 20081021
  8. STOCRIN TABLETS 600MG [Concomitant]
     Dosage: 600 MG DAILY, DIVIDED DOSE FREQUENCY UNKNOWN
     Route: 048
     Dates: start: 20090313, end: 20090421
  9. NORVIR [Concomitant]
     Indication: HIV INFECTION
     Dosage: 100 MG DAILY, DIVIDED DOSE FREQUENCY UNKNOWN
     Route: 048
     Dates: start: 20081022, end: 20081025
  10. REYATAZ [Concomitant]
     Indication: HIV INFECTION
     Dosage: 300 MG DAILY, DIVIDED DOSE FREQUENCY UNKNOWN
     Route: 048
     Dates: start: 20081022, end: 20081025
  11. NORVASC [Concomitant]
     Indication: PROPHYLAXIS
     Dosage: 2.5 MG, QD
     Route: 048

REACTIONS (2)
  - Neurogenic bladder [Not Recovered/Not Resolved]
  - Constipation [Not Recovered/Not Resolved]
